FAERS Safety Report 4332116-2 (Version None)
Quarter: 2004Q1

REPORT INFORMATION
  Report Type: 
  Country: None (occurrence: None)
  Receive Date: 20040331
  Receipt Date: 20040319
  Transmission Date: 20041129
  Serious: Yes (Other)
  Sender: FDA-Public Use
  Company Number: GB-JNJFOC-20040304599

PATIENT
  Age: 12 Year

DRUGS (1)
  1. CONCERTA [Suspect]
     Indication: DRUG USE FOR UNKNOWN INDICATION
     Dosage: 54 MG, UNKNOWN

REACTIONS (3)
  - BLINDNESS TRANSIENT [None]
  - BLINDNESS UNILATERAL [None]
  - COLOUR BLINDNESS ACQUIRED [None]
